FAERS Safety Report 7219371-6 (Version None)
Quarter: 2011Q1

REPORT INFORMATION
  Report Type: 
  Country: None (occurrence: None)
  Receive Date: 20110111
  Receipt Date: 20110105
  Transmission Date: 20110831
  Serious: No
  Sender: FDA-Public Use
  Company Number: US-PFIZER INC-2011003213

PATIENT
  Sex: Female
  Weight: 81 kg

DRUGS (2)
  1. MULTIVITAMIN [Concomitant]
  2. PREMARIN [Suspect]
     Dosage: 1 DF, 1X/DAY
     Route: 048
     Dates: start: 19600101

REACTIONS (5)
  - INSOMNIA [None]
  - HOT FLUSH [None]
  - MALAISE [None]
  - HYPERHIDROSIS [None]
  - NERVOUSNESS [None]
